FAERS Safety Report 17486326 (Version 2)
Quarter: 2020Q3

REPORT INFORMATION
  Report Type: Spontaneous
  Country: US (occurrence: US)
  Receive Date: 20200303
  Receipt Date: 20200918
  Transmission Date: 20201102
  Serious: No
  Sender: FDA-Public Use
  Company Number: US-TORRENT-00010049

PATIENT
  Sex: Female

DRUGS (2)
  1. PRAVACHOL [Concomitant]
     Active Substance: PRAVASTATIN SODIUM
     Indication: HYPERLIPIDAEMIA
     Dosage: UNKNOWN
  2. LOSARTAN AND HYDROCHLOROTHIAZIDE [Suspect]
     Active Substance: HYDROCHLOROTHIAZIDE\LOSARTAN POTASSIUM
     Indication: HYPERTENSION
     Dosage: UNKNOWN
     Route: 048
     Dates: start: 201611, end: 20190522

REACTIONS (12)
  - Skin exfoliation [Recovered/Resolved]
  - Alopecia [Recovered/Resolved]
  - Hair texture abnormal [Recovered/Resolved]
  - Thirst [Recovered/Resolved]
  - Illness [Recovered/Resolved]
  - Onychoclasis [Recovered/Resolved]
  - Cough [Recovered/Resolved]
  - Pigmentation disorder [Recovered/Resolved]
  - Dry skin [Recovered/Resolved]
  - Dry eye [Recovered/Resolved]
  - Oedema [Recovered/Resolved]
  - Dehydration [Recovered/Resolved]

NARRATIVE: CASE EVENT DATE: 201904
